FAERS Safety Report 17096689 (Version 1)
Quarter: 2019Q4

REPORT INFORMATION
  Report Type: Spontaneous
  Country: US (occurrence: US)
  Receive Date: 20191202
  Receipt Date: 20191202
  Transmission Date: 20200122
  Serious: Yes (Hospitalization)
  Sender: FDA-Public Use
  Company Number: US-GW PHARMA-201911USGW4384

PATIENT

DRUGS (1)
  1. EPIDIOLEX [Suspect]
     Active Substance: CANNABIDIOL
     Indication: EPILEPSY
     Dosage: 110 MILLIGRAM, QD (50 MG IN AM AND 60 MG IN PM)
     Route: 048
     Dates: start: 201909

REACTIONS (2)
  - Urinary tract infection [Unknown]
  - Renal transplant [Unknown]

NARRATIVE: CASE EVENT DATE: 2019
